FAERS Safety Report 24028247 (Version 1)
Quarter: 2024Q2

REPORT INFORMATION
  Report Type: Spontaneous
  Country: US (occurrence: None)
  Receive Date: 20240627
  Receipt Date: 20240627
  Transmission Date: 20240716
  Serious: Yes (Death, Hospitalization)
  Sender: FDA-Public Use
  Company Number: None

PATIENT
  Age: 62 Year
  Sex: Male

DRUGS (4)
  1. ADEMPAS [Suspect]
     Active Substance: RIOCIGUAT
     Indication: Pulmonary hypertension
     Dosage: FREQUENCY : 3 TIMES A DAY;?
     Route: 048
     Dates: start: 20181119, end: 20240611
  2. OZEMPIC [Concomitant]
  3. STIOLTO RESPIMAT [Concomitant]
     Active Substance: OLODATEROL HYDROCHLORIDE\TIOTROPIUM BROMIDE MONOHYDRATE
  4. ENOXAPARIN [Concomitant]

REACTIONS (7)
  - Epistaxis [None]
  - Syncope [None]
  - Acute respiratory failure [None]
  - Cardiac arrest [None]
  - Pulmonary embolism [None]
  - Seizure [None]
  - Brain injury [None]

NARRATIVE: CASE EVENT DATE: 20240603
